FAERS Safety Report 7647657-X (Version None)
Quarter: 2011Q3

REPORT INFORMATION
  Report Type: 
  Country: None (occurrence: None)
  Receive Date: 20110801
  Receipt Date: 20110801
  Transmission Date: 20111222
  Serious: Yes (Other)
  Sender: FDA-Public Use
  Company Number: None

PATIENT
  Sex: Female
  Weight: 31.6 kg

DRUGS (1)
  1. GABLOFEN [Suspect]
     Indication: MUSCLE SPASTICITY
     Dosage: 515 MCQ/DAY
     Route: 039
     Dates: start: 20110316, end: 20110731

REACTIONS (2)
  - HYPERTONIA [None]
  - PERSONALITY CHANGE [None]
